FAERS Safety Report 6180042-9 (Version None)
Quarter: 2009Q2

REPORT INFORMATION
  Report Type: 
  Country: None (occurrence: None)
  Receive Date: 20090505
  Receipt Date: 20090430
  Transmission Date: 20091009
  Serious: Yes (Life-Threatening)
  Sender: FDA-Public Use
  Company Number: GB-GILEAD-2009-0021738

PATIENT
  Age: 56 Year
  Sex: Male
  Weight: 77 kg

DRUGS (4)
  1. TRUVADA [Suspect]
     Indication: HIV INFECTION
     Route: 048
     Dates: start: 20081218
  2. 3TC [Suspect]
     Indication: RETROVIRAL INFECTION
     Route: 048
     Dates: start: 20050101, end: 20081217
  3. ABACAVIR [Suspect]
     Indication: RETROVIRAL INFECTION
     Route: 048
     Dates: start: 20050101, end: 20081217
  4. EFAVIRENZ [Suspect]
     Indication: RETROVIRAL INFECTION
     Route: 048
     Dates: start: 20070101

REACTIONS (1)
  - MYOCARDIAL INFARCTION [None]
